FAERS Safety Report 7390653-0 (Version None)
Quarter: 2011Q2

REPORT INFORMATION
  Report Type: 
  Country: None (occurrence: None)
  Receive Date: 20110404
  Receipt Date: 20110325
  Transmission Date: 20111010
  Serious: No
  Sender: FDA-Public Use
  Company Number: US-BIOGENIDEC-2010BI040198

PATIENT
  Sex: Female

DRUGS (2)
  1. TYSABRI [Suspect]
     Indication: MULTIPLE SCLEROSIS
     Route: 042
     Dates: start: 20050126, end: 20050201
  2. TYSABRI [Suspect]
     Route: 042
     Dates: start: 20070710, end: 20110101

REACTIONS (7)
  - BALANCE DISORDER [None]
  - MUSCLE SPASMS [None]
  - NAUSEA [None]
  - HYPERACUSIS [None]
  - DIZZINESS [None]
  - MULTIPLE SCLEROSIS RELAPSE [None]
  - MULTIPLE SCLEROSIS [None]
